FAERS Safety Report 4850727-2 (Version None)
Quarter: 2005Q4

REPORT INFORMATION
  Report Type: 
  Country: None (occurrence: None)
  Receive Date: 20051212
  Receipt Date: 20051201
  Transmission Date: 20060501
  Serious: Yes (Hospitalization)
  Sender: FDA-Public Use
  Company Number: US-JNJFOC-20051200976

PATIENT
  Sex: Male

DRUGS (20)
  1. INFLIXIMAB [Suspect]
     Indication: RHEUMATOID ARTHRITIS
     Route: 042
  2. ADALAT [Concomitant]
  3. FOLIC ACID [Concomitant]
  4. METHOTREXATE [Concomitant]
  5. OCUVIT [Concomitant]
  6. OCUVIT [Concomitant]
  7. OCUVIT [Concomitant]
  8. PLAQUENIL [Concomitant]
  9. PRILOSEC [Concomitant]
  10. SYNTHROID [Concomitant]
  11. SLO-FE [Concomitant]
  12. VITAMIN E [Concomitant]
  13. MULTIVITAMIN [Concomitant]
  14. MULTIVITAMIN [Concomitant]
  15. MULTIVITAMIN [Concomitant]
  16. MULTIVITAMIN [Concomitant]
  17. MULTIVITAMIN [Concomitant]
  18. MULTIVITAMIN [Concomitant]
  19. MULTIVITAMIN [Concomitant]
  20. MULTIVITAMIN [Concomitant]

REACTIONS (2)
  - ATRIAL FIBRILLATION [None]
  - HISTOPLASMOSIS [None]
